FAERS Safety Report 10543847 (Version 5)
Quarter: 2015Q3

REPORT INFORMATION
  Report Type: Spontaneous
  Country: US (occurrence: US)
  Receive Date: 20141027
  Receipt Date: 20150728
  Transmission Date: 20151125
  Serious: Yes (Hospitalization, Other)
  Sender: FDA-Public Use
  Company Number: US-BAYER-2014-156509

PATIENT
  Age: 83 Year
  Sex: Female
  Weight: 75 kg

DRUGS (2)
  1. ALEVE [Suspect]
     Active Substance: NAPROXEN SODIUM
     Indication: ARTHRITIS
     Dosage: 2 DF, QD FOR 3-4 DAYS
     Route: 048
     Dates: start: 201410, end: 20141020
  2. WARFARIN [Suspect]
     Active Substance: WARFARIN
     Indication: ARTHRALGIA
     Route: 048

REACTIONS (10)
  - Labelled drug-drug interaction medication error [None]
  - Peripheral swelling [Recovering/Resolving]
  - Faeces discoloured [Recovered/Resolved]
  - Skin discolouration [Not Recovered/Not Resolved]
  - Loss of consciousness [Recovered/Resolved]
  - Oxygen saturation decreased [Unknown]
  - Fall [Recovered/Resolved]
  - Gastric haemorrhage [Recovered/Resolved]
  - Gait disturbance [Not Recovered/Not Resolved]
  - Dyspnoea [Not Recovered/Not Resolved]

NARRATIVE: CASE EVENT DATE: 2014
